FAERS Safety Report 6050251-8 (Version None)
Quarter: 2009Q1

REPORT INFORMATION
  Report Type: 
  Country: None (occurrence: None)
  Receive Date: 20090122
  Receipt Date: 20090122
  Transmission Date: 20090719
  Serious: Yes (Life-Threatening, Hospitalization)
  Sender: FDA-Public Use
  Company Number: None

PATIENT
  Age: 51 Year
  Sex: Male
  Weight: 83.9154 kg

DRUGS (3)
  1. SERTRALINE [Suspect]
     Indication: DEPRESSION
     Dosage: 200 MG AM PO
     Route: 048
     Dates: start: 20081114, end: 20081216
  2. AMITRIPTYLINE 50 MG UDL [Suspect]
     Indication: INSOMNIA
     Dosage: 50 MG HS PO
     Route: 048
     Dates: start: 20081119, end: 20081230
  3. QUETIAPINE FUMARATE [Concomitant]

REACTIONS (10)
  - BALANCE DISORDER [None]
  - BLOOD PRESSURE INCREASED [None]
  - HYPERHIDROSIS [None]
  - OXYGEN SATURATION DECREASED [None]
  - PALPITATIONS [None]
  - RESPIRATORY RATE INCREASED [None]
  - SEROTONIN SYNDROME [None]
  - TACHYCARDIA [None]
  - TREMOR [None]
  - VISUAL IMPAIRMENT [None]
